FAERS Safety Report 5609565-5 (Version None)
Quarter: 2008Q1

REPORT INFORMATION
  Report Type: 
  Country: None (occurrence: None)
  Receive Date: 20080131
  Receipt Date: 20080109
  Transmission Date: 20080703
  Serious: No
  Sender: FDA-Public Use
  Company Number: US-BOEHRINGER INGELHEIM GMBH, GERMANY-2007-BP-25735BP

PATIENT
  Age: 45 Year
  Sex: Female
  Weight: 63 kg

DRUGS (10)
  1. SPIRIVA [Suspect]
     Indication: CHRONIC OBSTRUCTIVE PULMONARY DISEASE
     Route: 055
     Dates: end: 20071008
  2. CLARINEX [Concomitant]
  3. SINGULAIR [Concomitant]
  4. ASMANEX TWISTHALER [Concomitant]
     Dosage: 2 PUFFS BID
  5. NASONEX [Concomitant]
     Dosage: 1 SPRAY QHS
  6. MAXAIR [Concomitant]
  7. LOESTRIN [Concomitant]
  8. EFFEXOR [Concomitant]
  9. AMBIEN [Concomitant]
  10. ZANTAC [Concomitant]

REACTIONS (4)
  - COUGH [None]
  - DYSPNOEA [None]
  - UPPER RESPIRATORY TRACT INFECTION [None]
  - WHEEZING [None]
